FAERS Safety Report 9307204 (Version 3)
Quarter: 2013Q3

REPORT INFORMATION
  Report Type: Spontaneous
  Country: US (occurrence: US)
  Receive Date: 20130524
  Receipt Date: 20130731
  Transmission Date: 20140515
  Serious: Yes (Life-Threatening, Hospitalization, Disabling, Other)
  Sender: FDA-Public Use
  Company Number: US-009507513-1305USA012634

PATIENT
  Age: 54 Year
  Sex: Male
  Weight: 108.84 kg

DRUGS (5)
  1. VICTRELIS [Suspect]
     Indication: HEPATITIS C
     Dosage: 800 MG, TID
     Route: 048
     Dates: start: 20130429, end: 20130518
  2. PEGASYS [Suspect]
     Indication: HEPATITIS C
     Dosage: 180 MICROGRAM PER KILOGRAM, QW
     Dates: start: 20130401, end: 20130519
  3. REBETOL [Suspect]
     Indication: HEPATITIS C
     Dosage: 600 MG, BID
     Route: 048
     Dates: start: 20130401, end: 20130519
  4. IBUPROFEN [Concomitant]
  5. ASPIRIN [Concomitant]
     Indication: CARDIOVASCULAR EVENT PROPHYLAXIS
     Dosage: 81 MG, QD
     Route: 048

REACTIONS (25)
  - Gastrointestinal haemorrhage [Recovered/Resolved]
  - Polyp [Not Recovered/Not Resolved]
  - Hypovolaemic shock [Unknown]
  - Haemorrhagic anaemia [Recovered/Resolved]
  - Oesophageal ulcer [Unknown]
  - Large intestine polyp [Unknown]
  - Polypectomy [Unknown]
  - Renal failure acute [Recovering/Resolving]
  - Thrombocytopenia [Unknown]
  - Syncope [Unknown]
  - Diverticulum [Unknown]
  - Transfusion [Unknown]
  - Varices oesophageal [Unknown]
  - Fatigue [Unknown]
  - Myalgia [Unknown]
  - Insomnia [Unknown]
  - Decreased appetite [Unknown]
  - Weight decreased [Unknown]
  - Irritability [Unknown]
  - Myalgia [Unknown]
  - Nausea [Unknown]
  - Retching [Unknown]
  - Dyspepsia [Unknown]
  - Fall [Unknown]
  - Head injury [Unknown]
